FAERS Safety Report 10905164 (Version 1)
Quarter: 2015Q1

REPORT INFORMATION
  Report Type: Spontaneous
  Country: CA (occurrence: None)
  Receive Date: 20150309
  Receipt Date: 20150309
  Transmission Date: 20150721
  Serious: Yes (Life-Threatening, Hospitalization, Disabling)
  Sender: FDA-Public Use
  Company Number: None

PATIENT
  Sex: Female

DRUGS (1)
  1. MEDICINAL CANNIBUS CANNIMED [Suspect]
     Active Substance: CANNABIS SATIVA SUBSP. INDICA TOP
     Dosage: SMOKING

REACTIONS (5)
  - Mania [None]
  - Hostility [None]
  - Refusal of treatment by patient [None]
  - Intentional product misuse [None]
  - Aggression [None]
